FAERS Safety Report 8756488 (Version 2)
Quarter: 2012Q4

REPORT INFORMATION
  Report Type: Spontaneous
  Country: US (occurrence: None)
  Receive Date: 20120814
  Receipt Date: 20120906
  Transmission Date: 20130627
  Serious: Yes (Other)
  Sender: FDA-Public Use
  Company Number: DSU-2012-06227

PATIENT
  Age: 60 Year
  Sex: Female
  Weight: 61.69 kg

DRUGS (4)
  1. BENICAR HCT [Suspect]
     Indication: HYPERTENSION
     Route: 048
     Dates: start: 20041002
  2. LORATADINE [Concomitant]
  3. TRAMADOL (TRAMADOL)(TRAMADOL) [Concomitant]
  4. ASPIRIN (ACETYLSALICYLIC ACID)(ACETYLSALICYLIC ACID) [Concomitant]

REACTIONS (2)
  - Eye pain [None]
  - Cataract [None]
